FAERS Safety Report 6037933-9 (Version None)
Quarter: 2009Q1

REPORT INFORMATION
  Report Type: 
  Country: None (occurrence: None)
  Receive Date: 20090114
  Receipt Date: 20090114
  Transmission Date: 20090719
  Serious: Yes (Other)
  Sender: FDA-Public Use
  Company Number: None

PATIENT
  Sex: Female
  Weight: 56.6996 kg

DRUGS (1)
  1. PROAIR HFA [Suspect]
     Indication: ASTHMA
     Dosage: 2 PUFFS I TRY TO USE AS LITTLE AS POSSIBLE EVERY 4 HOURS OR AS NEEDED SPRING OF 2008 TO DEC. 2008
     Dates: end: 20081201

REACTIONS (4)
  - DYSPHONIA [None]
  - LUNG DISORDER [None]
  - NAUSEA [None]
  - PHARYNGEAL DISORDER [None]
